FAERS Safety Report 10069729 (Version 4)
Quarter: 2015Q1

REPORT INFORMATION
  Report Type: Spontaneous
  Country: MX (occurrence: MX)
  Receive Date: 20140410
  Receipt Date: 20150112
  Transmission Date: 20150720
  Serious: Yes (Death, Hospitalization, Other)
  Sender: FDA-Public Use
  Company Number: MX-ALEXION PHARMACEUTICALS INC.-A201401262

PATIENT

DRUGS (4)
  1. SOLIRIS [Suspect]
     Active Substance: ECULIZUMAB
     Dosage: 600 MG, QW
     Route: 042
     Dates: start: 20130529, end: 20130619
  2. SOLIRIS [Suspect]
     Active Substance: ECULIZUMAB
     Dosage: 900 MG, Q2W
     Route: 042
     Dates: start: 20130703, end: 20131219
  3. SOLIRIS [Suspect]
     Active Substance: ECULIZUMAB
     Indication: PAROXYSMAL NOCTURNAL HAEMOGLOBINURIA
     Dosage: 600 MG, QW
     Route: 042
     Dates: start: 20121210, end: 20130107
  4. SOLIRIS [Suspect]
     Active Substance: ECULIZUMAB
     Dosage: 900 MG, Q2W
     Route: 042
     Dates: start: 20130127, end: 20130204

REACTIONS (14)
  - Myelodysplastic syndrome [Unknown]
  - Abdominal pain [Unknown]
  - Anaemia [Unknown]
  - Septic shock [Fatal]
  - Lower gastrointestinal haemorrhage [Unknown]
  - Epigastric discomfort [Unknown]
  - Venous thrombosis limb [Unknown]
  - Acute respiratory distress syndrome [Unknown]
  - Pyrexia [Unknown]
  - Acute kidney injury [Fatal]
  - Pneumonia [Fatal]
  - Upper respiratory tract infection [Unknown]
  - Oral herpes [Unknown]
  - Thrombocytopenia [Unknown]

NARRATIVE: CASE EVENT DATE: 2013
